FAERS Safety Report 5195538-6 (Version None)
Quarter: 2006Q4

REPORT INFORMATION
  Report Type: 
  Country: None (occurrence: None)
  Receive Date: 20061222
  Receipt Date: 20061222
  Transmission Date: 20070319
  Serious: Yes (Hospitalization)
  Sender: FDA-Public Use
  Company Number: None

PATIENT
  Sex: Male
  Weight: 59.1 kg

DRUGS (2)
  1. ASPIRIN [Suspect]
     Dosage: DAILY PO
     Route: 048
  2. CLOPIDOGREL [Suspect]
     Dosage: 75 DAILY PO
     Route: 048

REACTIONS (5)
  - ALCOHOL USE [None]
  - DUODENAL ULCER [None]
  - HAEMOGLOBIN DECREASED [None]
  - TREATMENT NONCOMPLIANCE [None]
  - UPPER GASTROINTESTINAL HAEMORRHAGE [None]
